FAERS Safety Report 4459514-0 (Version None)
Quarter: 2004Q3

REPORT INFORMATION
  Report Type: 
  Country: None (occurrence: None)
  Receive Date: 20040910
  Receipt Date: 20040525
  Transmission Date: 20050211
  Serious: No
  Sender: FDA-Public Use
  Company Number: 2004215797US

PATIENT
  Age: 65 Year
  Sex: Male

DRUGS (6)
  1. BEXTRA [Suspect]
     Indication: GOUT
     Dosage: 10 MG, QD, UNK
     Route: 065
     Dates: start: 20040519
  2. COUMADIN [Concomitant]
  3. ALLOPURINOL [Concomitant]
  4. DIGOXIN [Concomitant]
  5. LASIX [Concomitant]
  6. TOPROL-XL [Concomitant]

REACTIONS (2)
  - GAIT DISTURBANCE [None]
  - VISUAL DISTURBANCE [None]
